FAERS Safety Report 9507467 (Version 1)
Quarter: 2013Q3

REPORT INFORMATION
  Report Type: Spontaneous
  Country: US (occurrence: None)
  Receive Date: 20130906
  Receipt Date: 20130906
  Transmission Date: 20140515
  Serious: No
  Sender: FDA-Public Use
  Company Number: None

PATIENT
  Age: 2 Year
  Sex: Male
  Weight: 13.61 kg

DRUGS (2)
  1. MONTELUKAST [Suspect]
     Indication: HYPERSENSITIVITY
     Dosage: 1 PILL  ONCE DAILY  TAKEN BY MOUTH
     Route: 048
     Dates: start: 20130830, end: 20130901
  2. MONTELUKAST [Suspect]
     Indication: ASTHMA
     Dosage: 1 PILL  ONCE DAILY  TAKEN BY MOUTH
     Route: 048
     Dates: start: 20130830, end: 20130901

REACTIONS (4)
  - Dyspnoea [None]
  - Lip swelling [None]
  - Skin exfoliation [None]
  - Erythema [None]
